FAERS Safety Report 5973045-8 (Version None)
Quarter: 2008Q4

REPORT INFORMATION
  Report Type: 
  Country: None (occurrence: None)
  Receive Date: 20081126
  Receipt Date: 20081126
  Transmission Date: 20090506
  Serious: Yes (Other)
  Sender: FDA-Public Use
  Company Number: None

PATIENT
  Age: 36 Year
  Sex: Female
  Weight: 61.2356 kg

DRUGS (2)
  1. CIPRO [Suspect]
     Indication: STREPTOCOCCAL INFECTION
     Dosage: 500 MG 2 TIMES A DAY BUCCAL
     Route: 002
     Dates: start: 20080520, end: 20080530
  2. CIPRO [Suspect]
     Indication: STAPHYLOCOCCAL INFECTION
     Dates: start: 20080602, end: 20080612

REACTIONS (9)
  - ARTHRALGIA [None]
  - BACK PAIN [None]
  - FATIGUE [None]
  - FRUSTRATION [None]
  - MUSCULOSKELETAL PAIN [None]
  - OEDEMA PERIPHERAL [None]
  - PAIN IN EXTREMITY [None]
  - RASH [None]
  - URINARY TRACT INFECTION [None]
